FAERS Safety Report 9668875 (Version 4)
Quarter: 2014Q1

REPORT INFORMATION
  Report Type: Spontaneous
  Country: JP (occurrence: JP)
  Receive Date: 20131105
  Receipt Date: 20140116
  Transmission Date: 20141002
  Serious: Yes (Life-Threatening, Other)
  Sender: FDA-Public Use
  Company Number: PHHY2013JP124337

PATIENT
  Age: 86 Year
  Sex: Male
  Weight: 43 kg

DRUGS (10)
  1. EXELON PATCH [Suspect]
     Indication: DEMENTIA ALZHEIMER^S TYPE
     Dosage: 67.5 MG (5 PATCHES), DAILY
     Route: 062
     Dates: start: 20131015, end: 20131015
  2. ARICEPT [Suspect]
     Indication: DEMENTIA ALZHEIMER^S TYPE
     Dosage: 3 MG, DAILY
     Route: 048
     Dates: start: 20130503, end: 20130516
  3. ARICEPT [Suspect]
     Dosage: 5 MG, DAILY
     Route: 048
     Dates: start: 20130517
  4. BAYASPIRIN [Concomitant]
     Indication: ANGINA PECTORIS
     Dosage: 100 MG, UNK
     Route: 048
     Dates: end: 20131015
  5. MAINTATE [Concomitant]
     Dosage: UNK UKN, UNK
     Route: 048
  6. GRAMALIL [Concomitant]
     Indication: AGITATION
     Dosage: 100 MG, UNK
     Route: 048
     Dates: end: 20131015
  7. MAINHEART [Concomitant]
     Dosage: 5 MG, UNK
     Route: 048
     Dates: end: 20131015
  8. FEBURIC [Concomitant]
     Dosage: 10 MG, UNK
     Route: 048
     Dates: end: 20131015
  9. ROZEREM [Concomitant]
     Indication: INSOMNIA
     Dosage: 8 MG, UNK
     Route: 048
     Dates: end: 20131015
  10. ZOLPIDEM TARTRATE [Concomitant]
     Indication: INSOMNIA
     Dosage: UNK UKN, UNK
     Route: 048
     Dates: end: 20131015

REACTIONS (14)
  - Loss of consciousness [Recovered/Resolved]
  - Unresponsive to stimuli [Unknown]
  - Overdose [Recovering/Resolving]
  - Blood pressure increased [Unknown]
  - Red blood cell count decreased [Unknown]
  - Haemoglobin decreased [Unknown]
  - Haematocrit decreased [Unknown]
  - Blood potassium decreased [Unknown]
  - White blood cell count increased [Recovered/Resolved]
  - Blood glucose increased [Unknown]
  - Lymphocyte count decreased [Unknown]
  - Neutrophil count increased [Unknown]
  - Somnolence [Unknown]
  - Wrong patient received medication [Unknown]
